FAERS Safety Report 17719869 (Version 1)
Quarter: 2020Q2

REPORT INFORMATION
  Report Type: Spontaneous
  Country: FR (occurrence: FR)
  Receive Date: 20200428
  Receipt Date: 20200428
  Transmission Date: 20200714
  Serious: Yes (Hospitalization, Other)
  Sender: FDA-Public Use
  Company Number: NVSC2020FR109681

PATIENT
  Age: 25 Year
  Sex: Male

DRUGS (1)
  1. ADALIMUMAB [Suspect]
     Active Substance: ADALIMUMAB
     Indication: PSORIASIS
     Dosage: 40 MG, EVERY TWO WEEKS
     Route: 065

REACTIONS (4)
  - Status epilepticus [Unknown]
  - Generalised tonic-clonic seizure [Unknown]
  - Encephalitis [Unknown]
  - Catatonia [Unknown]
